FAERS Safety Report 15146530 (Version 1)
Quarter: 2018Q4

REPORT INFORMATION
  Report Type: Spontaneous
  Country: US (occurrence: US)
  Receive Date: 20180715
  Receipt Date: 20180715
  Transmission Date: 20190204
  Serious: No
  Sender: FDA-Public Use
  Company Number: US-CEDIPROF, INC.-2052065

PATIENT
  Sex: Female

DRUGS (1)
  1. LEVO-T [Suspect]
     Active Substance: LEVOTHYROXINE SODIUM

REACTIONS (3)
  - Drug ineffective [Unknown]
  - Malaise [Unknown]
  - Palpitations [Unknown]
